FAERS Safety Report 19828586 (Version 1)
Quarter: 2021Q3

REPORT INFORMATION
  Report Type: Report from Study
  Country: KR (occurrence: KR)
  Receive Date: 20210914
  Receipt Date: 20210914
  Transmission Date: 20211014
  Serious: Yes (Other)
  Sender: FDA-Public Use
  Company Number: KR-GLAXOSMITHKLINE-KR2021193149

PATIENT
  Age: 61 Year
  Sex: Female
  Weight: 67.4 kg

DRUGS (8)
  1. BORYUNG MAXIPIME INJECTION [Concomitant]
     Indication: PANCYTOPENIA
     Dosage: 2 VIAL, TID
     Route: 042
     Dates: start: 20210826, end: 20210831
  2. MAGO (MAGNESIUM OXIDE) [Concomitant]
     Indication: PROPHYLAXIS
     Dosage: 500 MILLIGRAM, BID
     Route: 048
     Dates: start: 20201205, end: 20210620
  3. ACETAMINOPHEN. [Concomitant]
     Active Substance: ACETAMINOPHEN
     Indication: PROPHYLAXIS
     Dosage: 650 MILLIGRAM, PRN
     Route: 048
     Dates: start: 20201205, end: 20210620
  4. TELMINUVO [Concomitant]
     Active Substance: LEVAMLODIPINE\TELMISARTAN
     Indication: HYPERTENSION
     Dosage: 1 TAB, QD
     Route: 048
     Dates: start: 20201127, end: 20210620
  5. NIRAPARIB [Suspect]
     Active Substance: NIRAPARIB
     Indication: OVARIAN CANCER RECURRENT
     Dosage: 200 MILLIGRAM, QD
     Route: 048
     Dates: start: 20210728, end: 20210820
  6. GASTER (FAMOTIDIN) [Concomitant]
     Indication: PROPHYLAXIS
     Dosage: 20 MILLIGRAM, BID
     Route: 048
     Dates: start: 20201205, end: 20210620
  7. NEUTROGIN [Concomitant]
     Active Substance: LENOGRASTIM
     Indication: PANCYTOPENIA
     Dosage: UNK, 1 VIAL
     Route: 058
     Dates: start: 20210827, end: 20210830
  8. NIRAPARIB [Suspect]
     Active Substance: NIRAPARIB
     Indication: FALLOPIAN TUBE CANCER
     Dosage: 200 MILLIGRAM
     Route: 048
     Dates: start: 20210503, end: 20210620

REACTIONS (1)
  - Haemorrhage [Recovered/Resolved]

NARRATIVE: CASE EVENT DATE: 20210812
